FAERS Safety Report 17823240 (Version 1)
Quarter: 2020Q2

REPORT INFORMATION
  Report Type: Spontaneous
  Country: US (occurrence: US)
  Receive Date: 20200523
  Receipt Date: 20200523
  Transmission Date: 20200714
  Serious: No
  Sender: FDA-Public Use
  Company Number: None

PATIENT
  Age: 24 Year
  Sex: Female
  Weight: 74.25 kg

DRUGS (2)
  1. ELURYNG [Suspect]
     Active Substance: ETHINYL ESTRADIOL\ETONOGESTREL
     Indication: CONTRACEPTION
     Dates: start: 20200201, end: 20200315
  2. MULTIVITAMIN [Concomitant]
     Active Substance: VITAMINS

REACTIONS (5)
  - Menorrhagia [None]
  - Dysmenorrhoea [None]
  - Product substitution issue [None]
  - Dizziness [None]
  - Alopecia [None]

NARRATIVE: CASE EVENT DATE: 20200201
